FAERS Safety Report 9271657 (Version 1)
Quarter: 2013Q2

REPORT INFORMATION
  Report Type: Report from Study
  Country: MX (occurrence: MX)
  Receive Date: 20130506
  Receipt Date: 20130506
  Transmission Date: 20140414
  Serious: Yes (Hospitalization)
  Sender: FDA-Public Use
  Company Number: MX-ROCHE-1221197

PATIENT
  Age: 62 Year
  Sex: Male
  Weight: 81 kg

DRUGS (2)
  1. XELODA [Suspect]
     Indication: COLORECTAL CANCER
     Dosage: ADMINISTERED DAILY FOR 14 DAY FOLLOWED BY A 7 DAY REST PERIOD
     Route: 048
     Dates: start: 20130206, end: 201303
  2. XELODA [Suspect]
     Dosage: ADMINISTERED DAILY FOR 14 DAY FOLLOWED BY A 7 DAY REST PERIOD
     Route: 048
     Dates: start: 20130405

REACTIONS (7)
  - Dehydration [Unknown]
  - Malnutrition [Unknown]
  - Oedema peripheral [Not Recovered/Not Resolved]
  - Abdominal pain [Recovered/Resolved]
  - Aphthous stomatitis [Recovered/Resolved]
  - Weight decreased [Not Recovered/Not Resolved]
  - Diarrhoea [Recovered/Resolved]
